FAERS Safety Report 18799709 (Version 1)
Quarter: 2021Q1

REPORT INFORMATION
  Report Type: Spontaneous
  Country: US (occurrence: US)
  Receive Date: 20210128
  Receipt Date: 20210128
  Transmission Date: 20210419
  Serious: Yes (Hospitalization, Other)
  Sender: FDA-Public Use
  Company Number: US-HIKMA PHARMACEUTICALS USA INC.-US-H14001-21-53487

PATIENT
  Age: 23 Year
  Sex: Male

DRUGS (3)
  1. ALLOPURINOL. [Suspect]
     Active Substance: ALLOPURINOL
     Dosage: INCREASED WITH TIME
     Route: 065
  2. POTASSIUM CITRATE. [Concomitant]
     Active Substance: POTASSIUM CITRATE
     Indication: HYPOXANTHINE-GUANINE PHOSPHORIBOSYL TRANSFERASE DEFICIENCY
     Route: 065
  3. ALLOPURINOL. [Suspect]
     Active Substance: ALLOPURINOL
     Indication: HYPOXANTHINE-GUANINE PHOSPHORIBOSYL TRANSFERASE DEFICIENCY
     Route: 065

REACTIONS (8)
  - Pseudomonal sepsis [Recovered/Resolved]
  - Calculus urinary [Recovering/Resolving]
  - Urinary tract infection pseudomonal [Recovered/Resolved]
  - Enterococcal sepsis [Recovered/Resolved]
  - Hyperuricaemia [Recovered/Resolved]
  - Bacterial pyelonephritis [Recovered/Resolved]
  - Nephrolithiasis [Recovering/Resolving]
  - Hydronephrosis [Recovered/Resolved]
